FAERS Safety Report 4299836-X (Version None)
Quarter: 2004Q1

REPORT INFORMATION
  Report Type: 
  Country: None (occurrence: None)
  Receive Date: 20040126
  Receipt Date: 20031118
  Transmission Date: 20041129
  Serious: No
  Sender: FDA-Public Use
  Company Number: USA031152880

PATIENT
  Sex: Female
  Weight: 59 kg

DRUGS (4)
  1. STRATTERA [Suspect]
     Indication: ATTENTION DEFICIT/HYPERACTIVITY DISORDER
     Dosage: 25 MG/TWICE DAY
     Dates: start: 20031101
  2. WELLBUTRIN [Concomitant]
  3. DEPAKOTE [Concomitant]
  4. CELEXA [Concomitant]

REACTIONS (2)
  - DRUG EFFECT DECREASED [None]
  - FEELING ABNORMAL [None]
